FAERS Safety Report 10302034 (Version 1)
Quarter: 2014Q3

REPORT INFORMATION
  Report Type: Spontaneous
  Country: GB (occurrence: GB)
  Receive Date: 20140714
  Receipt Date: 20140714
  Transmission Date: 20150326
  Serious: Yes (Other)
  Sender: FDA-Public Use
  Company Number: GB-ASTRAZENECA-2014SE48445

PATIENT
  Age: 42 Year
  Sex: Female

DRUGS (2)
  1. XYLOCAINE WITH EPINEPHRINE [Suspect]
     Active Substance: EPINEPHRINE BITARTRATE\LIDOCAINE HYDROCHLORIDE
     Route: 004
     Dates: start: 20140415, end: 20140415
  2. DICLOFENAC [Concomitant]
     Active Substance: DICLOFENAC
     Dosage: AS REQUIRED

REACTIONS (3)
  - Toxicity to various agents [Recovered/Resolved]
  - Feeling abnormal [Recovered/Resolved]
  - Muscle twitching [Recovered/Resolved]

NARRATIVE: CASE EVENT DATE: 20140415
